FAERS Safety Report 10264566 (Version 2)
Quarter: 2014Q2

REPORT INFORMATION
  Report Type: Spontaneous
  Country: US (occurrence: US)
  Receive Date: 20140627
  Receipt Date: 20140627
  Transmission Date: 20141212
  Serious: Yes (Other)
  Sender: FDA-Public Use
  Company Number: US-AMGEN-USASP2013081332

PATIENT
  Age: 7 Month
  Sex: Female
  Weight: 9.04 kg

DRUGS (2)
  1. ENBREL [Suspect]
     Indication: PRODUCT USED FOR UNKNOWN INDICATION
     Dosage: 50 MG, QMO
     Route: 064
     Dates: start: 201109
  2. ACYCLOVIR                          /00587301/ [Concomitant]
     Indication: HERPES VIRUS INFECTION
     Dosage: 400 MG, QD
     Route: 064
     Dates: start: 201301

REACTIONS (7)
  - Ear tube insertion [Unknown]
  - Otorrhoea [Unknown]
  - Cough [Unknown]
  - Drug hypersensitivity [Unknown]
  - Urticaria [Unknown]
  - Respiratory syncytial virus infection [Unknown]
  - Ear infection [Unknown]
